FAERS Safety Report 22221896 (Version 1)
Quarter: 2023Q2

REPORT INFORMATION
  Report Type: Report from Study
  Country: GB (occurrence: GB)
  Receive Date: 20230418
  Receipt Date: 20230418
  Transmission Date: 20230721
  Serious: Yes (Hospitalization, Other)
  Sender: FDA-Public Use
  Company Number: GB-TAKEDA-2023TUS038045

PATIENT
  Sex: Female

DRUGS (1)
  1. VEDOLIZUMAB [Suspect]
     Active Substance: VEDOLIZUMAB
     Indication: Colitis ulcerative
     Dosage: 108 MILLIGRAM
     Route: 058

REACTIONS (9)
  - Haematochezia [Unknown]
  - Dizziness [Unknown]
  - Frequent bowel movements [Unknown]
  - Vomiting [Unknown]
  - Asthenia [None]
  - Mucous stools [Unknown]
  - Myalgia [Unknown]
  - Drug ineffective [Unknown]
  - Headache [Unknown]
